FAERS Safety Report 14836972 (Version 1)
Quarter: 2018Q2

REPORT INFORMATION
  Report Type: Spontaneous
  Country: US (occurrence: US)
  Receive Date: 20180502
  Receipt Date: 20180502
  Transmission Date: 20180711
  Serious: Yes (Hospitalization, Other)
  Sender: FDA-Public Use
  Company Number: US-TEVA-2018-US-886326

PATIENT
  Sex: Female

DRUGS (3)
  1. FEXOFENADINE [Suspect]
     Active Substance: FEXOFENADINE\FEXOFENADINE HYDROCHLORIDE
     Route: 065
  2. BREO ELLIPTA [Concomitant]
     Active Substance: FLUTICASONE FUROATE\VILANTEROL TRIFENATATE
  3. NUVIGIL [Suspect]
     Active Substance: ARMODAFINIL
     Indication: FEELING ABNORMAL
     Dosage: 150 MILLIGRAM DAILY;

REACTIONS (15)
  - Anaphylactic reaction [Unknown]
  - Dizziness [Unknown]
  - Palpitations [Unknown]
  - Hypersensitivity [Unknown]
  - Urticaria [Unknown]
  - Vision blurred [Unknown]
  - Flushing [Unknown]
  - Nausea [Unknown]
  - Burning sensation [Unknown]
  - Heart rate decreased [Unknown]
  - Fatigue [Unknown]
  - Arrhythmia [Unknown]
  - Rash [Unknown]
  - Malaise [Unknown]
  - Feeling abnormal [Unknown]

NARRATIVE: CASE EVENT DATE: 201607
